FAERS Safety Report 23196853 (Version 1)
Quarter: 2023Q4

REPORT INFORMATION
  Report Type: Spontaneous
  Country: CA (occurrence: CA)
  Receive Date: 20231117
  Receipt Date: 20231117
  Transmission Date: 20240110
  Serious: Yes (Hospitalization)
  Sender: FDA-Public Use
  Company Number: CA-PFIZER INC-202300362801

PATIENT
  Age: 48 Year
  Sex: Female

DRUGS (14)
  1. BORTEZOMIB [Suspect]
     Active Substance: BORTEZOMIB
     Dosage: UNK
     Route: 065
  2. LENALIDOMIDE [Suspect]
     Active Substance: LENALIDOMIDE
     Indication: Plasma cell myeloma
     Dosage: 10 MG, 1X/DAY
     Route: 048
  3. CYCLOPHOSPHAMIDE [Suspect]
     Active Substance: CYCLOPHOSPHAMIDE
     Dosage: UNK
     Route: 065
  4. DARATUMUMAB [Suspect]
     Active Substance: DARATUMUMAB
     Dosage: UNK
     Route: 065
  5. DEXAMETHASONE [Suspect]
     Active Substance: DEXAMETHASONE
     Dosage: UNK
     Route: 065
  6. ZOLEDRONIC ACID [Suspect]
     Active Substance: ZOLEDRONIC ACID
     Dosage: UNK
     Route: 065
  7. ASPIRIN [Concomitant]
     Active Substance: ASPIRIN
     Dosage: UNK
     Route: 065
  8. ACYCLOVIR [Concomitant]
     Active Substance: ACYCLOVIR
     Dosage: UNK
     Route: 065
  9. CALCIUM [Concomitant]
     Active Substance: CALCIUM
     Dosage: UNK
     Route: 065
  10. COLLAGEN [Concomitant]
     Active Substance: COLLAGEN
     Dosage: UNK
     Route: 065
  11. MODAFINIL [Concomitant]
     Active Substance: MODAFINIL
     Dosage: UNK
     Route: 065
  12. PANTOPRAZOLE SODIUM [Concomitant]
     Active Substance: PANTOPRAZOLE SODIUM
     Dosage: UNK
     Route: 065
  13. SULFAMETHOXAZOLE\TRIMETHOPRIM [Concomitant]
     Active Substance: SULFAMETHOXAZOLE\TRIMETHOPRIM
     Dosage: UNK
     Route: 065
  14. VITAMIN D3 [Concomitant]
     Active Substance: CHOLECALCIFEROL
     Dosage: UNK
     Route: 065

REACTIONS (4)
  - Hypersensitivity [Recovered/Resolved]
  - Pyrexia [Recovered/Resolved]
  - Skin reaction [Recovered/Resolved]
  - Urticaria [Recovered/Resolved]
